FAERS Safety Report 5086185-5 (Version None)
Quarter: 2006Q3

REPORT INFORMATION
  Report Type: 
  Country: None (occurrence: None)
  Receive Date: 20060818
  Receipt Date: 20060809
  Transmission Date: 20061208
  Serious: Yes (Other)
  Sender: FDA-Public Use
  Company Number: GXKR2006PT04657

PATIENT
  Age: 42 Year
  Sex: Female
  Weight: 52 kg

DRUGS (3)
  1. CLARITHROMYCIN [Suspect]
     Dosage: ORAL
     Route: 048
     Dates: start: 20060720
  2. BUDESONIDE [Concomitant]
  3. FORMOTEROL FUMARATE INHALER [Concomitant]

REACTIONS (5)
  - APHONIA [None]
  - DRY MOUTH [None]
  - DYSGEUSIA [None]
  - DYSPEPSIA [None]
  - OESOPHAGEAL DISCOMFORT [None]
